FAERS Safety Report 21584789 (Version 1)
Quarter: 2022Q4

REPORT INFORMATION
  Report Type: Spontaneous
  Country: US (occurrence: None)
  Receive Date: 20221110
  Receipt Date: 20221110
  Transmission Date: 20230113
  Serious: Yes (Hospitalization, Disabling)
  Sender: FDA-Public Use
  Company Number: None

PATIENT
  Age: 46 Year
  Sex: Female
  Weight: 57.6 kg

DRUGS (8)
  1. CHLORAPREP [Suspect]
     Active Substance: CHLORHEXIDINE GLUCONATE\ISOPROPYL ALCOHOL
     Indication: Surgery
     Dates: start: 20220926, end: 20220926
  2. Synthroid 150mcg once/AM [Concomitant]
  3. Singulair 10mg once/AM [Concomitant]
  4. Albuterol inhaler two puffs every six hours as needed [Concomitant]
  5. Symbicort inhaler- 1 puff twice day [Concomitant]
  6. Cervical Botox (neck,-every 3 months) [Concomitant]
  7. Multi Vitamin [Concomitant]
  8. Zyrtec 20mg take once/AM [Concomitant]

REACTIONS (20)
  - Paraesthesia [None]
  - Chills [None]
  - Peripheral swelling [None]
  - Hypoaesthesia [None]
  - Hypoaesthesia [None]
  - Headache [None]
  - Shock symptom [None]
  - Pain [None]
  - Peripheral swelling [None]
  - Peripheral swelling [None]
  - Peripheral swelling [None]
  - Walking disability [None]
  - Skin injury [None]
  - Skin exfoliation [None]
  - Joint swelling [None]
  - Tendon pain [None]
  - Hypersensitivity [None]
  - Impaired quality of life [None]
  - Nonspecific reaction [None]
  - Skin disorder [None]

NARRATIVE: CASE EVENT DATE: 20220928
